FAERS Safety Report 5873506-6 (Version None)
Quarter: 2008Q3

REPORT INFORMATION
  Report Type: 
  Country: None (occurrence: None)
  Receive Date: 20080903
  Receipt Date: 20080821
  Transmission Date: 20090109
  Serious: Yes (Hospitalization, Other)
  Sender: FDA-Public Use
  Company Number: 2008-02422

PATIENT
  Age: 65 Year
  Sex: Male
  Weight: 0.052 kg

DRUGS (16)
  1. VELCADE [Suspect]
     Indication: MULTIPLE MYELOMA
     Dosage: 2 MG, INTRAVENOUS
     Route: 042
     Dates: start: 20070925, end: 20070925
  2. DEXAMETHASONE [Concomitant]
  3. ZOVIRAX [Concomitant]
  4. GLYCYRRHINE [Concomitant]
  5. FAMOTIDINE [Concomitant]
  6. BACTRIM [Concomitant]
  7. DIOVAN [Concomitant]
  8. AMLODIPINE BESYLATE [Concomitant]
  9. LANSOPRAZOLE [Concomitant]
  10. ROPION (FLURBIPROFEN AXETIL) [Concomitant]
  11. NISSEKI POLYGLOBIN-N [Concomitant]
  12. MEROPEN (MEROPENEM) [Concomitant]
  13. AMBISOME [Concomitant]
  14. GANCICLOVIR [Concomitant]
  15. HYOSCINE HBR HYT [Concomitant]
  16. RED BLOOD CELLS [Concomitant]

REACTIONS (14)
  - ANAEMIA [None]
  - BLOOD UREA INCREASED [None]
  - ENTEROCOLITIS BACTERIAL [None]
  - HEPATIC FUNCTION ABNORMAL [None]
  - HYPERGLYCAEMIA [None]
  - HYPERKALAEMIA [None]
  - HYPOALBUMINAEMIA [None]
  - HYPOKALAEMIA [None]
  - HYPOPROTEINAEMIA [None]
  - INTESTINAL OBSTRUCTION [None]
  - LYMPHOCYTE COUNT DECREASED [None]
  - NEUROPATHY PERIPHERAL [None]
  - PLATELET COUNT DECREASED [None]
  - PNEUMONIA CYTOMEGALOVIRAL [None]
